FAERS Safety Report 9180536 (Version 1)
Quarter: 2013Q1

REPORT INFORMATION
  Report Type: Spontaneous
  Country: US (occurrence: None)
  Receive Date: 20130320
  Receipt Date: 20130320
  Transmission Date: 20140127
  Serious: Yes (Hospitalization)
  Sender: FDA-Public Use
  Company Number: 3-871985860

PATIENT
  Age: 18 Month
  Sex: Female

DRUGS (3)
  1. UP+UP DYE FREE INFANT^S PAIN AND FEVER ACETAMINOPHEN [Suspect]
  2. UNSPECIFIED INGREDIENT [Suspect]
     Dates: start: 20130228
  3. UNSPECIFIED INGREDIENT [Suspect]
     Dates: start: 20130228

REACTIONS (1)
  - Convulsion [None]
